FAERS Safety Report 8758325 (Version 5)
Quarter: 2020Q4

REPORT INFORMATION
  Report Type: Report from Study
  Country: DE (occurrence: DE)
  Receive Date: 20120829
  Receipt Date: 20201123
  Transmission Date: 20210114
  Serious: Yes (Other)
  Sender: FDA-Public Use
  Company Number: PHHO2012DE012419

PATIENT
  Age: 68 Year
  Sex: Male

DRUGS (10)
  1. SONIDEGIB [Suspect]
     Active Substance: SONIDEGIB
     Dosage: 100 MG, QD
     Route: 048
     Dates: start: 20120926
  2. AMN107 [Suspect]
     Active Substance: NILOTINIB
     Indication: CHRONIC MYELOID LEUKAEMIA
     Dosage: 800 MG, DAILY
     Route: 048
     Dates: start: 20120125, end: 20120515
  3. AMN107 [Suspect]
     Active Substance: NILOTINIB
     Dosage: NO TREATMENT
     Route: 065
     Dates: start: 20120517, end: 20120604
  4. AMN107 [Suspect]
     Active Substance: NILOTINIB
     Dosage: NO TREATMENT
     Route: 065
     Dates: start: 20120813, end: 20120815
  5. AMN107 [Suspect]
     Active Substance: NILOTINIB
     Dosage: 400 MG, DAILY
     Route: 048
     Dates: start: 20120829, end: 20130101
  6. SONIDEGIB [Suspect]
     Active Substance: SONIDEGIB
     Indication: CHRONIC MYELOID LEUKAEMIA
     Dosage: 200 MG, QD
     Route: 048
     Dates: start: 20120126, end: 20120823
  7. AMN107 [Suspect]
     Active Substance: NILOTINIB
     Dosage: NO TREATMENT
     Route: 065
     Dates: start: 20120824, end: 20120828
  8. AMN107 [Suspect]
     Active Substance: NILOTINIB
     Dosage: 400 MG, DAILY
     Route: 048
     Dates: start: 20120516, end: 20120516
  9. AMN107 [Suspect]
     Active Substance: NILOTINIB
     Dosage: 400 MG, DAILY
     Route: 048
     Dates: start: 20120605, end: 20120812
  10. AMN107 [Suspect]
     Active Substance: NILOTINIB
     Dosage: 400 MG, DAILY
     Route: 048
     Dates: start: 20120816, end: 20120823

REACTIONS (1)
  - Blood creatine phosphokinase increased [Recovered/Resolved]

NARRATIVE: CASE EVENT DATE: 20120824
